FAERS Safety Report 10967398 (Version 1)
Quarter: 2015Q1

REPORT INFORMATION
  Report Type: Spontaneous
  Country: US (occurrence: None)
  Receive Date: 20150226
  Receipt Date: 20150226
  Transmission Date: 20150721
  Serious: No
  Sender: FDA-Public Use
  Company Number: TPA2010A00876

PATIENT
  Age: 80 Year
  Sex: Female
  Weight: 81.65 kg

DRUGS (15)
  1. ASPIRIN (ACETYLSALICYLIC ACID) [Concomitant]
     Active Substance: ASPIRIN
  2. OXYGEN. [Concomitant]
     Active Substance: OXYGEN
  3. ULORIC [Suspect]
     Active Substance: FEBUXOSTAT
     Indication: GOUTY TOPHUS
     Dosage: 1 IN 1 D
     Route: 048
     Dates: start: 20100110
  4. METOPROLOL [Concomitant]
     Active Substance: METOPROLOL
  5. LABETALOL [Concomitant]
     Active Substance: LABETALOL\LABETALOL HYDROCHLORIDE
  6. FOLIC ACID. [Concomitant]
     Active Substance: FOLIC ACID
  7. MULTIVITAMIN (ERGOCALCIFEROL, ASCORBIC ACID, FOLIC ACID, THIAMINE HYDROCHLORIDE, RETINOL, RIBOFLAVIN, NICOTINAMIDE, PANTHENOL) [Concomitant]
  8. DIGOXIN. [Concomitant]
     Active Substance: DIGOXIN
  9. KLOR-CON (POTASSIUM CHLORIDE) [Concomitant]
  10. CALCIUM WITH VITAMIN D (ERGOCALICFEROL, CALCIUM PHOSPHATE, CALCIUM SODIUM LACTATE) [Concomitant]
  11. ALBUTEROL SULFATE / IPRATROPIUM BROMIDE (IPRATROPIUM BROMIDE, SALBUTAMOL SULFATE) [Concomitant]
  12. DULCOLAX (BISACODYL) [Concomitant]
     Active Substance: BISACODYL
  13. COLCHICINE. [Concomitant]
     Active Substance: COLCHICINE
  14. ZOCOR (ALL OTHER THERAPEUTIC PRODUCTS) [Concomitant]
  15. FUROSEMIDE. [Concomitant]
     Active Substance: FUROSEMIDE

REACTIONS (1)
  - Gout [None]
